FAERS Safety Report 16412324 (Version 1)
Quarter: 2019Q2

REPORT INFORMATION
  Report Type: Spontaneous
  Country: US (occurrence: US)
  Receive Date: 20190610
  Receipt Date: 20190610
  Transmission Date: 20190711
  Serious: Yes (Death, Other)
  Sender: FDA-Public Use
  Company Number: US-009507513-1906USA002155

PATIENT
  Sex: Female

DRUGS (1)
  1. SIVEXTRO [Suspect]
     Active Substance: TEDIZOLID PHOSPHATE
     Dosage: 1 TABLET, DAILY, ROUTE: BY MOUTH
     Route: 048

REACTIONS (1)
  - Death [Fatal]
